FAERS Safety Report 17913506 (Version 11)
Quarter: 2020Q4

REPORT INFORMATION
  Report Type: Report from Study
  Country: CN (occurrence: CN)
  Receive Date: 20200618
  Receipt Date: 20201102
  Transmission Date: 20210113
  Serious: Yes (Death, Hospitalization)
  Sender: FDA-Public Use
  Company Number: CN-EISAI MEDICAL RESEARCH-EC-2020-076095

PATIENT
  Age: 48 Year
  Sex: Male

DRUGS (8)
  1. LENVATINIB [Suspect]
     Active Substance: LENVATINIB
     Route: 048
     Dates: start: 20190411, end: 20200614
  2. L-THYROXINE SODIUM [Concomitant]
     Active Substance: LEVOTHYROXINE SODIUM
     Indication: HYPOTHYROIDISM
     Route: 048
     Dates: start: 20191030
  3. AMLODIPINE BESYLATE. [Concomitant]
     Active Substance: AMLODIPINE BESYLATE
     Indication: HYPERTENSION
     Route: 048
     Dates: start: 20191128
  4. GEL DRESSING [Concomitant]
     Indication: HAND-FOOT-AND-MOUTH DISEASE
     Dosage: QS
     Route: 062
     Dates: start: 20200513
  5. LENVATINIB [Suspect]
     Active Substance: LENVATINIB
     Indication: THYROID CANCER
     Route: 048
     Dates: start: 20181228, end: 20190410
  6. CHITOSAN MEDICAL BIOGEL [Concomitant]
     Indication: HAND-FOOT-AND-MOUTH DISEASE
     Dosage: QS
     Route: 062
     Dates: start: 20190930
  7. LOSARTAN POTASSIUM. [Concomitant]
     Active Substance: LOSARTAN POTASSIUM
     Indication: HYPERTENSION
     Route: 048
     Dates: start: 20200417
  8. SHEN YAN KANG FU PIAN [Concomitant]
     Indication: PROTEINURIA
     Route: 048
     Dates: start: 20191128

REACTIONS (2)
  - Small intestinal haemorrhage [Fatal]
  - Pneumonia [Fatal]

NARRATIVE: CASE EVENT DATE: 20200610
